FAERS Safety Report 7659332-6 (Version None)
Quarter: 2011Q3

REPORT INFORMATION
  Report Type: 
  Country: None (occurrence: None)
  Receive Date: 20110805
  Receipt Date: 20110802
  Transmission Date: 20111222
  Serious: Yes (Hospitalization, Other)
  Sender: FDA-Public Use
  Company Number: US-ABBOTT-11P-163-0843404-00

PATIENT
  Sex: Female
  Weight: 78.088 kg

DRUGS (5)
  1. HUMIRA [Suspect]
     Indication: PSORIATIC ARTHROPATHY
     Dates: start: 20100301, end: 20100601
  2. PROZAC [Concomitant]
     Indication: ANXIETY
  3. LOESTRIN 24 FE [Concomitant]
     Indication: HORMONE REPLACEMENT THERAPY
  4. HUMIRA [Suspect]
     Dates: start: 20110501
  5. SYNTHROID [Concomitant]
     Indication: HYPOTHYROIDISM

REACTIONS (10)
  - COSTOCHONDRITIS [None]
  - FATIGUE [None]
  - ABDOMINAL ADHESIONS [None]
  - PROCEDURAL PAIN [None]
  - FIBROMYALGIA [None]
  - POST PROCEDURAL SWELLING [None]
  - BLOOD POTASSIUM DECREASED [None]
  - SMALL INTESTINAL OBSTRUCTION [None]
  - MUSCULOSKELETAL CHEST PAIN [None]
  - ABDOMINAL PAIN [None]
